FAERS Safety Report 8774191 (Version 1)
Quarter: 2012Q4

REPORT INFORMATION
  Report Type: 
  Country: US (occurrence: US)
  Receive Date: 20120907
  Receipt Date: 20120907
  Transmission Date: 20130627
  Serious: No
  Sender: FDA-Public Use
  Company Number: US-B.I. PHARMACEUTICALS,INC./RIDGEFIELD-2012-BP-21477BP

PATIENT
  Sex: Female

DRUGS (5)
  1. PRADAXA [Suspect]
     Indication: ATRIAL FIBRILLATION
     Dosage: 300 mg
     Route: 048
     Dates: start: 20120225
  2. SOTALOL [Suspect]
     Indication: ARRHYTHMIA
     Dosage: 320 mg
     Route: 048
     Dates: start: 20120225
  3. LOVASTATIN [Concomitant]
     Indication: BLOOD CHOLESTEROL INCREASED
     Dosage: 10 mg
     Route: 048
  4. TEGRETOL [Concomitant]
     Indication: EPILEPSY
     Dosage: 100 mg
     Route: 048
  5. CAPTOPRIL [Concomitant]
     Indication: HYPERTENSION
     Dosage: 75 mg
     Route: 048

REACTIONS (1)
  - Fungal infection [Not Recovered/Not Resolved]
